FAERS Safety Report 8900964 (Version 1)
Quarter: 2012Q4

REPORT INFORMATION
  Report Type: 
  Country: FR (occurrence: FR)
  Receive Date: 20121109
  Receipt Date: 20121109
  Transmission Date: 20130627
  Serious: Yes (Hospitalization)
  Sender: FDA-Public Use
  Company Number: FR-NOVOPROD-363310

PATIENT
  Age: 19 Year
  Sex: Female

DRUGS (4)
  1. LEVEMIR [Suspect]
     Indication: TYPE 1 DIABETES MELLITUS
     Dosage: 26 IU, qd (6 IU in morning and 20 IU in evening)
     Route: 065
  2. LEVEMIR [Suspect]
     Route: 065
  3. NOVORAPID [Suspect]
     Indication: TYPE 1 DIABETES MELLITUS
     Dosage: 29 IU, qd (12 IU in morning, 9 IU at noon and 8 IU in evening)
     Route: 065
  4. NOVORAPID [Suspect]
     Route: 065

REACTIONS (3)
  - Intentional drug misuse [Recovering/Resolving]
  - Diabetic ketoacidosis [Unknown]
  - Hypoglycaemia [Recovered/Resolved]
